FAERS Safety Report 11803472 (Version 1)
Quarter: 2015Q4

REPORT INFORMATION
  Report Type: Spontaneous
  Country: CA (occurrence: CA)
  Receive Date: 20151204
  Receipt Date: 20151204
  Transmission Date: 20160305
  Serious: Yes (Other)
  Sender: FDA-Public Use
  Company Number: CA-TEVA-613884ACC

PATIENT
  Sex: Male

DRUGS (2)
  1. GABAPENTIN. [Suspect]
     Active Substance: GABAPENTIN
     Indication: PAIN
     Route: 065
  2. HYDROMORPHONE [Suspect]
     Active Substance: HYDROMORPHONE
     Indication: PAIN
     Route: 065

REACTIONS (9)
  - Muscle spasms [Unknown]
  - Dyspnoea [Unknown]
  - Abdominal pain upper [Unknown]
  - Joint swelling [Unknown]
  - Peripheral swelling [Unknown]
  - Tremor [Unknown]
  - Coordination abnormal [Unknown]
  - Chest pain [Unknown]
  - Muscle tightness [Unknown]
